FAERS Safety Report 14218624 (Version 1)
Quarter: 2017Q4

REPORT INFORMATION
  Report Type: Spontaneous
  Country: US (occurrence: US)
  Receive Date: 20171123
  Receipt Date: 20171123
  Transmission Date: 20180321
  Serious: Yes (Hospitalization, Other)
  Sender: FDA-Public Use
  Company Number: US-APOTEX-2017AP021811

PATIENT
  Age: 55 Year
  Sex: Male

DRUGS (1)
  1. PIPERACILLIN AND TAZOBACTAM [Suspect]
     Active Substance: PIPERACILLIN SODIUM\TAZOBACTAM SODIUM
     Indication: PNEUMONIA ASPIRATION
     Dosage: UNK
     Route: 065

REACTIONS (4)
  - Platelet dysfunction [Recovering/Resolving]
  - Cerebral haemorrhage [Unknown]
  - Medical device site haematoma [Unknown]
  - Intraventricular haemorrhage [Unknown]
